FAERS Safety Report 20689771 (Version 1)
Quarter: 2022Q2

REPORT INFORMATION
  Report Type: Spontaneous
  Country: PL (occurrence: PL)
  Receive Date: 20220408
  Receipt Date: 20220408
  Transmission Date: 20220720
  Serious: Yes (Hospitalization, Other)
  Sender: FDA-Public Use
  Company Number: PL-GLAXOSMITHKLINE-PL2022EME060825

PATIENT
  Age: 25 Year
  Sex: Female

DRUGS (6)
  1. LAMOTRIGINE [Suspect]
     Active Substance: LAMOTRIGINE
     Indication: Mixed anxiety and depressive disorder
     Dosage: UNK
  2. LAMOTRIGINE [Suspect]
     Active Substance: LAMOTRIGINE
     Dosage: 200 MG, QD
  3. TRAZODONE [Concomitant]
     Active Substance: TRAZODONE HYDROCHLORIDE
     Indication: Mixed anxiety and depressive disorder
     Dosage: 50 MG, QD
  4. SULPIRIDE [Concomitant]
     Active Substance: SULPIRIDE
     Indication: Mixed anxiety and depressive disorder
     Dosage: 100 MG, QD
  5. VENLAFAXINE [Concomitant]
     Active Substance: VENLAFAXINE HYDROCHLORIDE
     Indication: Mixed anxiety and depressive disorder
     Dosage: 7 MG, QD
  6. ZOLPIDEM [Concomitant]
     Active Substance: ZOLPIDEM TARTRATE
     Indication: Mixed anxiety and depressive disorder
     Dosage: 10 MG, QD

REACTIONS (18)
  - Stevens-Johnson syndrome [Recovered/Resolved]
  - Rash erythematous [Recovered/Resolved]
  - Skin lesion [Recovered/Resolved]
  - Mucosal erosion [Recovered/Resolved]
  - Conjunctival erosion [Recovered/Resolved]
  - Upper respiratory tract infection [Recovered/Resolved]
  - Body temperature increased [Recovered/Resolved]
  - Affective disorder [Recovered/Resolved]
  - Conjunctival hyperaemia [Recovered/Resolved]
  - Dysphagia [Recovered/Resolved]
  - Oral pain [Recovered/Resolved]
  - Lip erosion [Recovered/Resolved]
  - Genital erosion [Recovered/Resolved]
  - Blister [Recovered/Resolved]
  - C-reactive protein increased [Recovered/Resolved]
  - Hyperplasia [Recovered/Resolved]
  - Hyperthyroidism [Recovered/Resolved]
  - Therapy cessation [Unknown]
